FAERS Safety Report 19448348 (Version 2)
Quarter: 2021Q3

REPORT INFORMATION
  Report Type: Spontaneous
  Country: RO (occurrence: RO)
  Receive Date: 20210622
  Receipt Date: 20210703
  Transmission Date: 20211014
  Serious: Yes (Life-Threatening, Hospitalization, Other)
  Sender: FDA-Public Use
  Company Number: RO-ACCORD-228738

PATIENT
  Age: 34 Year
  Sex: Male

DRUGS (3)
  1. BLEOMYCIN [Suspect]
     Active Substance: BLEOMYCIN SULFATE
     Indication: TESTICULAR SEMINOMA (PURE)
  2. ETOPOSIDE. [Suspect]
     Active Substance: ETOPOSIDE
     Indication: TESTICULAR SEMINOMA (PURE)
     Dosage: ETOPOSIDE 100 MG/MP IN THE FIRST FIVE DAYS  (FIRST CHEMOTHERAPY SESSION)
  3. CISPLATIN. [Suspect]
     Active Substance: CISPLATIN
     Indication: TESTICULAR SEMINOMA (PURE)
     Dosage: CISPLATIN 20 MG/MP IN THE FIRST FIVE DAYS  (FIRST CHEMOTHERAPY SESSION)

REACTIONS (4)
  - Acute myocardial infarction [Recovered/Resolved]
  - Arteriospasm coronary [Recovered/Resolved]
  - Endothelial dysfunction [Recovered/Resolved]
  - Coronary artery thrombosis [Recovered/Resolved]
